FAERS Safety Report 6939112-7 (Version None)
Quarter: 2010Q3

REPORT INFORMATION
  Report Type: 
  Country: None (occurrence: None)
  Receive Date: 20100824
  Receipt Date: 20100720
  Transmission Date: 20110219
  Serious: No
  Sender: FDA-Public Use
  Company Number: US-PFIZER INC-2010091418

PATIENT
  Sex: Female
  Weight: 113 kg

DRUGS (5)
  1. NORVASC [Suspect]
     Indication: ARTERIOSPASM CORONARY
     Dosage: 5 MG, 2X/DAY
     Route: 048
     Dates: start: 20100301
  2. LIPITOR [Suspect]
     Indication: BLOOD CHOLESTEROL INCREASED
     Dosage: 10 MG, ONCE A DAY
     Route: 048
     Dates: start: 20100301
  3. LISINOPRIL [Suspect]
     Indication: HYPERTENSION
     Dosage: 10 MG, 2X/DAY
     Route: 048
     Dates: start: 20100301
  4. ACETAMINOPHEN [Suspect]
     Indication: HEADACHE
     Dosage: 1000 MG, UNK
     Route: 048
     Dates: start: 20100301
  5. ACETYLSALICYLIC ACID [Concomitant]
     Dosage: 80 MG, ONCE A DAY

REACTIONS (2)
  - HEADACHE [None]
  - MIGRAINE [None]
